FAERS Safety Report 7805200-6 (Version None)
Quarter: 2011Q4

REPORT INFORMATION
  Report Type: 
  Country: None (occurrence: None)
  Receive Date: 20111010
  Receipt Date: 20100809
  Transmission Date: 20120403
  Serious: Yes (Other)
  Sender: FDA-Public Use
  Company Number: US-BAYER-201032879NA

PATIENT
  Age: 22 Year
  Sex: Male

DRUGS (2)
  1. IBUPROFEN [Concomitant]
     Dosage: UNK
     Dates: end: 20100810
  2. BETASERON [Suspect]
     Indication: MULTIPLE SCLEROSIS
     Dosage: 2 MIU, QOD
     Route: 058
     Dates: start: 20100809

REACTIONS (6)
  - DIZZINESS [None]
  - HYPERHIDROSIS [None]
  - DYSKINESIA [None]
  - CHILLS [None]
  - FEELING HOT [None]
  - CHEST PAIN [None]
